FAERS Safety Report 9943383 (Version 1)
Quarter: 2014Q1

REPORT INFORMATION
  Report Type: Spontaneous
  Country: FR (occurrence: FR)
  Receive Date: 20140303
  Receipt Date: 20140303
  Transmission Date: 20141002
  Serious: Yes (Other)
  Sender: FDA-Public Use
  Company Number: FR-ASTRAZENECA-2014SE12070

PATIENT
  Age: 86 Year
  Sex: Female

DRUGS (7)
  1. CANDESARTAN [Suspect]
     Route: 048
  2. PARACETAMOL [Suspect]
     Dosage: PUNCTUALLY
  3. DABIGATRAN [Suspect]
  4. FLECAINIDE [Concomitant]
  5. LERCANIDIPINE [Concomitant]
  6. PROPRANOLOL [Concomitant]
  7. TRAMADOL [Concomitant]
     Dosage: PUNCTUALLY

REACTIONS (2)
  - Hepatocellular injury [Recovered/Resolved]
  - Renal failure acute [Recovering/Resolving]
